FAERS Safety Report 5500395-1 (Version None)
Quarter: 2007Q4

REPORT INFORMATION
  Report Type: 
  Country: None (occurrence: None)
  Receive Date: 20071029
  Receipt Date: 20071018
  Transmission Date: 20080405
  Serious: Yes (Other)
  Sender: FDA-Public Use
  Company Number: US-ROCHE-491900

PATIENT
  Age: 19 Year
  Sex: Female

DRUGS (3)
  1. ACCUTANE [Suspect]
     Route: 048
     Dates: start: 19971027, end: 19980201
  2. ACCUTANE [Suspect]
     Route: 048
     Dates: start: 19940101, end: 19940101
  3. ORAL CONTRACEPTIVE PILL [Concomitant]
     Indication: CONTRACEPTION
     Dosage: FORM REPORTED AS PILL NOTED AS ^ORTHOCEPT.^
     Dates: start: 19920101

REACTIONS (2)
  - ABORTION INDUCED [None]
  - NO ADVERSE REACTION [None]
